FAERS Safety Report 16708987 (Version 1)
Quarter: 2019Q3

REPORT INFORMATION
  Report Type: Spontaneous
  Country: US (occurrence: US)
  Receive Date: 20190816
  Receipt Date: 20190816
  Transmission Date: 20191004
  Serious: No
  Sender: FDA-Public Use
  Company Number: US-APOTEX-2019AP019032

PATIENT
  Sex: Male

DRUGS (1)
  1. CEFUROXIME. [Suspect]
     Active Substance: CEFUROXIME
     Indication: LYME DISEASE
     Dosage: 1 G, Q.12H
     Route: 065

REACTIONS (2)
  - Prescription drug used without a prescription [Unknown]
  - Product use issue [Unknown]
